FAERS Safety Report 13106432 (Version 1)
Quarter: 2017Q1

REPORT INFORMATION
  Report Type: Spontaneous
  Country: US (occurrence: US)
  Receive Date: 20170111
  Receipt Date: 20170111
  Transmission Date: 20170428
  Serious: Yes (Life-Threatening, Other)
  Sender: FDA-Public Use
  Company Number: US-BAYER-2017-003985

PATIENT
  Age: 58 Year
  Sex: Male

DRUGS (6)
  1. WARFARIN [Suspect]
     Active Substance: WARFARIN
     Dosage: 0.04 U/MIN
     Route: 042
  2. ACETYLSALICYLIC ACID({=100 MG) [Suspect]
     Active Substance: ASPIRIN
  3. KETAMINE [Concomitant]
     Active Substance: KETAMINE
  4. ROCURONIUM [Concomitant]
     Active Substance: ROCURONIUM BROMIDE
  5. MIDAZOLAM [Concomitant]
     Active Substance: MIDAZOLAM HYDROCHLORIDE
  6. FENTANYL. [Concomitant]
     Active Substance: FENTANYL

REACTIONS (3)
  - Cardiac tamponade [None]
  - Mediastinal haemorrhage [None]
  - Haemoglobin decreased [None]
